FAERS Safety Report 13856232 (Version 1)
Quarter: 2017Q3

REPORT INFORMATION
  Report Type: Report from Study
  Country: US (occurrence: US)
  Receive Date: 20170810
  Receipt Date: 20170810
  Transmission Date: 20171127
  Serious: Yes (Hospitalization, Other)
  Sender: FDA-Public Use
  Company Number: US-BRISTOL-MYERS SQUIBB COMPANY-BMS-2017-068790

PATIENT
  Age: 12 Year
  Sex: Female

DRUGS (2)
  1. BLINDED ABATACEPT [Suspect]
     Active Substance: ABATACEPT
     Indication: GRAFT VERSUS HOST DISEASE
     Dosage: 390 MG, UNK
     Route: 042
     Dates: start: 20160405, end: 20160504
  2. BLINDED PLACEBO [Suspect]
     Active Substance: INVESTIGATIONAL PRODUCT
     Indication: GRAFT VERSUS HOST DISEASE
     Dosage: 390 MG, UNK
     Route: 042
     Dates: start: 20160405, end: 20160504

REACTIONS (1)
  - Post transplant lymphoproliferative disorder [Recovering/Resolving]

NARRATIVE: CASE EVENT DATE: 20160531
